FAERS Safety Report 10254500 (Version 1)
Quarter: 2014Q2

REPORT INFORMATION
  Report Type: Spontaneous
  Country: US (occurrence: US)
  Receive Date: 20140624
  Receipt Date: 20140624
  Transmission Date: 20141212
  Serious: Yes (Hospitalization)
  Sender: FDA-Public Use
  Company Number: US-AMGEN INC.-USASP2014046449

PATIENT
  Age: 17 Year
  Sex: Female

DRUGS (3)
  1. ENBREL [Suspect]
     Indication: STILL^S DISEASE ADULT ONSET
     Dosage: 25 MG, 2 TIMES/WK
     Route: 065
  2. MTX                                /00113801/ [Suspect]
     Indication: STILL^S DISEASE ADULT ONSET
     Dosage: 12.5 MG, QWK
     Route: 065
  3. PREDNISONE [Suspect]
     Indication: STILL^S DISEASE ADULT ONSET
     Dosage: 10 MG, QD
     Route: 065
     Dates: end: 200310

REACTIONS (6)
  - Influenza like illness [Unknown]
  - Lung infiltration [Unknown]
  - Nausea [Unknown]
  - Vomiting [Unknown]
  - Diarrhoea [Unknown]
  - Arthritis [Unknown]
